FAERS Safety Report 4462412-X (Version None)
Quarter: 2004Q3

REPORT INFORMATION
  Report Type: 
  Country: None (occurrence: None)
  Receive Date: 20040924
  Receipt Date: 20040917
  Transmission Date: 20050211
  Serious: Yes (Hospitalization)
  Sender: FDA-Public Use
  Company Number: HQWYE114617SEP04

PATIENT
  Sex: Male

DRUGS (1)
  1. CEFIXORAL (CEFIXIME) [Suspect]
     Indication: NASAL ABSCESS
     Dosage: 400 MG SINGLE DOSE
     Route: 048
     Dates: start: 20040908, end: 20040908

REACTIONS (2)
  - ERYTHEMA [None]
  - SKIN DISORDER [None]
